FAERS Safety Report 10208089 (Version 2)
Quarter: 2014Q2

REPORT INFORMATION
  Report Type: Report from Study
  Country: US (occurrence: US)
  Receive Date: 20140530
  Receipt Date: 20140530
  Transmission Date: 20141212
  Serious: Yes (Hospitalization)
  Sender: FDA-Public Use
  Company Number: PHHO2012US014054

PATIENT
  Age: 37 Year
  Sex: Male
  Weight: 99.2 kg

DRUGS (7)
  1. ZOMETA [Suspect]
     Indication: HYPERCALCAEMIA
     Dosage: 4 MG, QD (X 1)
     Route: 042
     Dates: start: 20120925
  2. ALBUTEROL [Concomitant]
     Indication: ASTHMA
     Dosage: 2 DF (PUFF), QD
     Route: 055
     Dates: start: 20000720
  3. ATIVAN [Concomitant]
     Indication: ANXIETY
     Dosage: 1 MG, Q6H PRN
     Route: 048
     Dates: start: 20081109
  4. PANCRELIPASE [Concomitant]
     Indication: DIARRHOEA
     Dosage: 2 DF, W/MEALS + SNACKS
     Route: 048
     Dates: start: 20100616
  5. LISINOPRIL [Concomitant]
     Indication: HYPERTENSION
     Dosage: 20 MG, QD
     Route: 048
     Dates: start: 20101123
  6. OMEPRAZOLE [Concomitant]
     Dosage: 20 MG, BID
     Route: 048
     Dates: start: 20081011
  7. OXYCODONE [Concomitant]
     Indication: PAIN
     Dosage: 5-10 MG Q4H PRN
     Route: 048
     Dates: start: 20081109

REACTIONS (2)
  - Pneumonia [Recovered/Resolved]
  - Hypercalcaemia [Recovered/Resolved]
